FAERS Safety Report 4562628-8 (Version None)
Quarter: 2005Q1

REPORT INFORMATION
  Report Type: 
  Country: None (occurrence: None)
  Receive Date: 20050124
  Receipt Date: 20050110
  Transmission Date: 20050727
  Serious: Yes (Hospitalization, Other)
  Sender: FDA-Public Use
  Company Number: 2005007676

PATIENT
  Age: 33 Year
  Sex: Male
  Weight: 79 kg

DRUGS (2)
  1. FELDENE [Suspect]
     Indication: ANKYLOSING SPONDYLITIS
     Dosage: 20 MG (1 D), ORAL
     Route: 048
     Dates: start: 20031031, end: 20031128
  2. SALAZOPRYINE (SULFASALAZINE) [Suspect]
     Indication: ANKYLOSING SPONDYLITIS
     Dosage: 2 GRAM (1 D), ORAL
     Route: 048
     Dates: start: 20031031, end: 20031128

REACTIONS (1)
  - DRUG HYPERSENSITIVITY [None]
